FAERS Safety Report 21195606 (Version 1)
Quarter: 2022Q3

REPORT INFORMATION
  Report Type: Spontaneous
  Country: US (occurrence: US)
  Receive Date: 20220810
  Receipt Date: 20220810
  Transmission Date: 20221027
  Serious: No
  Sender: FDA-Public Use
  Company Number: US-BRISTOL-MYERS SQUIBB COMPANY-2022-087728

PATIENT
  Age: 71 Year
  Sex: Male

DRUGS (2)
  1. OPDIVO [Suspect]
     Active Substance: NIVOLUMAB
     Indication: Neoplasm malignant
     Dosage: DOSE : PLEASE SEE DESCRIBE EVENT;     FREQ : PLEASE SEE DESCRIBE EVENT
     Route: 065
     Dates: start: 20220520
  2. YERVOY [Suspect]
     Active Substance: IPILIMUMAB
     Indication: Neoplasm malignant
     Route: 065
     Dates: start: 20220520

REACTIONS (2)
  - Diarrhoea [Unknown]
  - Intentional product use issue [Unknown]
